FAERS Safety Report 8522253-0 (Version None)
Quarter: 2012Q3

REPORT INFORMATION
  Report Type: 
  Country: None (occurrence: None)
  Receive Date: 20120719
  Receipt Date: 20120712
  Transmission Date: 20120928
  Serious: Yes (Hospitalization, Other)
  Sender: FDA-Public Use
  Company Number: US-B.I. PHARMACEUTICALS,INC./RIDGEFIELD-2012-BP-02512BP

PATIENT
  Sex: Female

DRUGS (16)
  1. TRADJENTA [Suspect]
     Indication: TYPE 2 DIABETES MELLITUS
  2. CALCIUM [Concomitant]
  3. VITAMIN D [Concomitant]
  4. METOPROLOL SUCCINATE [Concomitant]
  5. CENTRUM [Concomitant]
  6. SPIRONOLACTONE [Concomitant]
  7. ACTOS [Concomitant]
  8. BUMEX [Concomitant]
  9. ZETIA [Concomitant]
  10. GARLIC [Concomitant]
  11. TRADJENTA [Suspect]
     Indication: RENAL FAILURE CHRONIC
  12. FISH OIL [Concomitant]
  13. PRILOSEC [Concomitant]
  14. SYNTHROID [Concomitant]
  15. ASPIRIN [Concomitant]
  16. RED YEAST RICE [Concomitant]

REACTIONS (2)
  - RENAL FAILURE ACUTE [None]
  - PANCREATITIS ACUTE [None]
